FAERS Safety Report 17023015 (Version 1)
Quarter: 2019Q4

REPORT INFORMATION
  Report Type: Spontaneous
  Country: CA (occurrence: CA)
  Receive Date: 20191112
  Receipt Date: 20191112
  Transmission Date: 20200122
  Serious: Yes (Other)
  Sender: FDA-Public Use
  Company Number: CA-INDIVIOR EUROPE LIMITED-INDV-122313-2019

PATIENT
  Age: 49 Year
  Sex: Female
  Weight: 81.63 kg

DRUGS (1)
  1. SUBOXONE [Suspect]
     Active Substance: BUPRENORPHINE HYDROCHLORIDE\NALOXONE HYDROCHLORIDE
     Indication: PAIN
     Dosage: 16 MILLIGRAM, QD (2 EVERY 1 DAY)
     Route: 065

REACTIONS (4)
  - Pain [Unknown]
  - Drug ineffective [Unknown]
  - Product substitution issue [Unknown]
  - Off label use [Unknown]
